FAERS Safety Report 24750114 (Version 2)
Quarter: 2024Q4

REPORT INFORMATION
  Report Type: Spontaneous
  Country: US (occurrence: US)
  Receive Date: 20241218
  Receipt Date: 20241227
  Transmission Date: 20250114
  Serious: No
  Sender: SANOFI AVENTIS
  Company Number: US-SA-2024SA370723

PATIENT
  Age: 71 Year
  Sex: Female

DRUGS (24)
  1. DUPIXENT [Suspect]
     Active Substance: DUPILUMAB
     Indication: Asthma
     Dosage: 300MG, QOW
     Route: 058
  2. VITAMINS [Concomitant]
     Active Substance: VITAMINS
  3. PREDNISONE [Concomitant]
     Active Substance: PREDNISONE
  4. HEMORRHOIDAL [Concomitant]
     Active Substance: PHENYLEPHRINE HYDROCHLORIDE\WITCH HAZEL
  5. SPIRIVA RESPIMAT [Concomitant]
     Active Substance: TIOTROPIUM BROMIDE
  6. ELIQUIS [Concomitant]
     Active Substance: APIXABAN
  7. FOLIC ACID [Concomitant]
     Active Substance: FOLIC ACID
  8. GABAPENTIN [Concomitant]
     Active Substance: GABAPENTIN
  9. IPRATROPIUM [Concomitant]
     Active Substance: IPRATROPIUM
  10. JANUVIA [Concomitant]
     Active Substance: SITAGLIPTIN PHOSPHATE
  11. MAGNESIUM [Concomitant]
     Active Substance: MAGNESIUM
  12. MONTELUKAST [Concomitant]
     Active Substance: MONTELUKAST SODIUM
  13. OLMESARTAN MEDOXOMIL [Concomitant]
     Active Substance: OLMESARTAN MEDOXOMIL
  14. PATADAY [Concomitant]
     Active Substance: OLOPATADINE HYDROCHLORIDE
  15. RESTASIS [Concomitant]
     Active Substance: CYCLOSPORINE
  16. Centrum adults [Concomitant]
  17. DOFETILIDE [Concomitant]
     Active Substance: DOFETILIDE
  18. METOPROLOL SUCCINATE [Concomitant]
     Active Substance: METOPROLOL SUCCINATE
  19. GABAPENTIN [Concomitant]
     Active Substance: GABAPENTIN
  20. FAMOTIDINE [Concomitant]
     Active Substance: FAMOTIDINE
  21. BREZTRI [Concomitant]
     Active Substance: BUDESONIDE\FORMOTEROL\GLYCOPYRROLATE
  22. ACARBOSE [Concomitant]
     Active Substance: ACARBOSE
  23. FAMOTIDINE [Concomitant]
     Active Substance: FAMOTIDINE
  24. HYDROCORTISONE PROBUTATE [Concomitant]
     Active Substance: HYDROCORTISONE PROBUTATE

REACTIONS (4)
  - Injection site inflammation [Not Recovered/Not Resolved]
  - Injection site erythema [Unknown]
  - Injection site rash [Unknown]
  - Injection site pruritus [Unknown]
